FAERS Safety Report 16755674 (Version 1)
Quarter: 2019Q3

REPORT INFORMATION
  Report Type: Report from Study
  Country: US (occurrence: US)
  Receive Date: 20190829
  Receipt Date: 20190829
  Transmission Date: 20191005
  Serious: Yes (Death, Hospitalization)
  Sender: FDA-Public Use
  Company Number: US-ROCHE-2346768

PATIENT
  Age: 39 Year
  Sex: Male
  Weight: 87.7 kg

DRUGS (15)
  1. IBRUTINIB [Suspect]
     Active Substance: IBRUTINIB
     Indication: DIFFUSE LARGE B-CELL LYMPHOMA
     Dosage: LAST DOSE ADMINISTERED PRIOR TO EVENT ONSET- ON 24/JUN/2019-  560 MG
     Route: 048
     Dates: start: 20190520
  2. PEGFILGRASTIM [Concomitant]
     Active Substance: PEGFILGRASTIM
     Dosage: DOSE=- 6 MG/0.6 ML
     Route: 058
     Dates: start: 20190621
  3. ACYCLOVIR [ACICLOVIR] [Concomitant]
     Active Substance: ACYCLOVIR
     Route: 048
     Dates: start: 20190517
  4. VENETOCLAX. [Suspect]
     Active Substance: VENETOCLAX
     Indication: DIFFUSE LARGE B-CELL LYMPHOMA
     Dosage: LAST DOSE ADMINISTERED PRIOR TO EVENT ONSET- ON 24/JUN/2019-  800 MG?HE RECEIVED LAST DOSE OF VENETO
     Route: 048
     Dates: start: 20190521
  5. SENNA FRUIT [Concomitant]
     Route: 048
     Dates: start: 20190518
  6. MIRALAX [Concomitant]
     Active Substance: POLYETHYLENE GLYCOL 3350
     Route: 065
     Dates: start: 20190517
  7. HYDROMORPHONE [Concomitant]
     Active Substance: HYDROMORPHONE
     Dosage: FREQUENCY- AS NEEDED
     Route: 048
     Dates: start: 20190525
  8. NIVOLUMAB [Concomitant]
     Active Substance: NIVOLUMAB
     Route: 065
     Dates: start: 201903, end: 201905
  9. SULFAMETHOXAZOLE/TRIMETHOPRIM [Concomitant]
     Active Substance: SULFAMETHOXAZOLE\TRIMETHOPRIM
     Dosage: DOSE- 800 MG/160 MG
     Route: 065
     Dates: start: 20190520
  10. POTASSIUM CHLORIDE. [Concomitant]
     Active Substance: POTASSIUM CHLORIDE
     Dosage: EXTENDED RELEASE?2 TABLETS
     Route: 048
     Dates: start: 20190621
  11. MORPHINE [Concomitant]
     Active Substance: MORPHINE
     Dosage: 2 TABLETS
     Route: 048
     Dates: start: 20190517
  12. PREDNISONE. [Suspect]
     Active Substance: PREDNISONE
     Indication: DIFFUSE LARGE B-CELL LYMPHOMA
     Dosage: LAST DOSE ADMINISTERED PRIOR TO EVENT ONSET ON 20/JUN/2019- 100 MG
     Route: 048
     Dates: start: 20190520
  13. OBINUTUZUMAB. [Suspect]
     Active Substance: OBINUTUZUMAB
     Indication: DIFFUSE LARGE B-CELL LYMPHOMA
     Dosage: LAST DOSE ADMINISTERED PRIOR TO EVENT ONSET ON 15/JUN/2019- 1000 MG
     Route: 042
     Dates: start: 20190520
  14. LENALIDOMIDE [Suspect]
     Active Substance: LENALIDOMIDE
     Indication: DIFFUSE LARGE B-CELL LYMPHOMA
     Dosage: LAST DOSE ADMINISTERED PRIOR TO EVENT ONSET ON 24/JUN/2019- 15 MG
     Route: 048
     Dates: start: 20190520
  15. COLLAGENASE [Concomitant]
     Active Substance: COLLAGENASE CLOSTRIDIUM HISTOLYTICUM
     Dosage: DOSE- 250 UNITS/GRAM, ONE APPLICATION TO AFFECTED AREA TOPICALLY
     Route: 061
     Dates: start: 20190522

REACTIONS (2)
  - Diarrhoea [Recovered/Resolved]
  - Disease progression [Fatal]

NARRATIVE: CASE EVENT DATE: 20190622
